FAERS Safety Report 8522501-7 (Version None)
Quarter: 2012Q3

REPORT INFORMATION
  Report Type: 
  Country: None (occurrence: None)
  Receive Date: 20120719
  Receipt Date: 20120711
  Transmission Date: 20120928
  Serious: Yes (Hospitalization, Other)
  Sender: FDA-Public Use
  Company Number: GB-BAXTER-2012BAX009794

PATIENT
  Sex: Female

DRUGS (7)
  1. EPREX [Concomitant]
     Route: 058
  2. DIANEAL [Suspect]
     Route: 033
     Dates: start: 20120624
  3. OMEPRAZOLE [Concomitant]
     Route: 048
  4. AMLODIPINE [Concomitant]
     Dosage: DAILY
     Route: 048
  5. PHOSEX [Concomitant]
     Route: 048
  6. SIMVASTATIN [Concomitant]
     Route: 048
  7. ALFACALCIDOL [Concomitant]
     Dosage: 0.75 MCG/KG
     Route: 048

REACTIONS (5)
  - PROCEDURAL PAIN [None]
  - MUSCULOSKELETAL PAIN [None]
  - PYREXIA [None]
  - PERITONITIS BACTERIAL [None]
  - HERNIA [None]
